FAERS Safety Report 5136567-8 (Version None)
Quarter: 2006Q4

REPORT INFORMATION
  Report Type: 
  Country: None (occurrence: None)
  Receive Date: 20061023
  Receipt Date: 20061012
  Transmission Date: 20070319
  Serious: Yes (Disabling)
  Sender: FDA-Public Use
  Company Number: 2006113035

PATIENT
  Age: 84 Year
  Sex: Female
  Weight: 65.318 kg

DRUGS (6)
  1. LYRICA [Suspect]
     Indication: NEURALGIA
     Dosage: 50 MG (50 MG, FREQUENCY: HS)
     Dates: start: 20060801, end: 20060901
  2. NORPACE [Concomitant]
  3. ATENOLOL [Concomitant]
  4. LEVOXYL [Concomitant]
  5. ZETIA [Concomitant]
  6. LESCOL [Concomitant]

REACTIONS (7)
  - ABASIA [None]
  - GAIT DISTURBANCE [None]
  - LETHARGY [None]
  - PAIN IN EXTREMITY [None]
  - SEDATION [None]
  - SOMNOLENCE [None]
  - SPEECH DISORDER [None]
